FAERS Safety Report 4998397-7 (Version None)
Quarter: 2006Q2

REPORT INFORMATION
  Report Type: 
  Country: None (occurrence: None)
  Receive Date: 20060508
  Receipt Date: 20060425
  Transmission Date: 20061013
  Serious: Yes (Death, Hospitalization, Disabling)
  Sender: FDA-Public Use
  Company Number: PHO-2006-012

PATIENT
  Age: 46 Year
  Sex: Male

DRUGS (1)
  1. PHOTOFRIN [Suspect]
     Indication: PHOTODYNAMIC THERAPY
     Dosage: 206 MG IV
     Route: 042
     Dates: start: 19990404

REACTIONS (6)
  - CSF BACTERIA IDENTIFIED [None]
  - DEPRESSED LEVEL OF CONSCIOUSNESS [None]
  - ENTEROBACTER INFECTION [None]
  - OSTEOMYELITIS [None]
  - SOMNOLENCE [None]
  - WOUND INFECTION [None]
